FAERS Safety Report 8513880 (Version 2)
Quarter: 2012Q4

REPORT INFORMATION
  Report Type: 
  Country: US (occurrence: US)
  Receive Date: 20120416
  Receipt Date: 20120904
  Transmission Date: 20130627
  Serious: Yes (Other)
  Sender: FDA-Public Use
  Company Number: US-BAYER-2012-035574

PATIENT
  Age: 25 Year
  Sex: Female
  Weight: 59.86 kg

DRUGS (3)
  1. MIRENA [Suspect]
     Indication: CONTRACEPTION
     Dosage: 20 ?g/d, CONT
     Route: 015
     Dates: start: 20120203, end: 20120203
  2. MIRENA [Suspect]
     Indication: MENORRHAGIA
  3. TRILEPTAL [Concomitant]

REACTIONS (1)
  - Device dislocation [None]
